FAERS Safety Report 4679650-3 (Version None)
Quarter: 2005Q2

REPORT INFORMATION
  Report Type: 
  Country: None (occurrence: None)
  Receive Date: 20050311
  Receipt Date: 20050311
  Transmission Date: 20051028
  Serious: No
  Sender: FDA-Public Use
  Company Number: None

PATIENT
  Sex: Female

DRUGS (2)
  1. MACRODANTIN [Suspect]
     Indication: PROPHYLAXIS
     Dosage: ONE PO HS
     Route: 048
  2. MACRODANTIN [Suspect]
     Indication: URINARY TRACT INFECTION
     Dosage: ONE PO HS
     Route: 048

REACTIONS (2)
  - DIZZINESS [None]
  - PHARMACEUTICAL PRODUCT COMPLAINT [None]
